FAERS Safety Report 6764683-3 (Version None)
Quarter: 2010Q2

REPORT INFORMATION
  Report Type: 
  Country: None (occurrence: None)
  Receive Date: 20100610
  Receipt Date: 20100601
  Transmission Date: 20101027
  Serious: Yes (Other)
  Sender: FDA-Public Use
  Company Number: CA-BAXTER-2010BH015015

PATIENT
  Age: 70 Year
  Sex: Male

DRUGS (1)
  1. SODIUM CHLORIDE 0.9% IN PLASTIC CONTAINER [Suspect]
     Indication: CENTRAL VENOUS CATHETERISATION
     Route: 065
     Dates: start: 20100526, end: 20100526

REACTIONS (3)
  - ACCIDENTAL EXPOSURE [None]
  - DEVICE BREAKAGE [None]
  - POST PROCEDURAL INFECTION [None]
